FAERS Safety Report 6899319-4 (Version None)
Quarter: 2010Q3

REPORT INFORMATION
  Report Type: 
  Country: None (occurrence: None)
  Receive Date: 20100802
  Receipt Date: 20100728
  Transmission Date: 20110219
  Serious: Yes (Hospitalization)
  Sender: FDA-Public Use
  Company Number: US-BRISTOL-MYERS SQUIBB COMPANY-15206188

PATIENT
  Age: 67 Year
  Sex: Female
  Weight: 119 kg

DRUGS (7)
  1. CYCLOPHOSPHAMIDE [Suspect]
     Indication: BREAST CANCER
     Route: 042
     Dates: start: 20100608, end: 20100706
  2. ADRIAMYCIN PFS [Suspect]
     Indication: BREAST CANCER
     Route: 042
     Dates: start: 20100608, end: 20100706
  3. BENICAR [Concomitant]
     Indication: HYPERTENSION
     Dates: start: 20070701
  4. ATIVAN [Concomitant]
     Indication: NAUSEA
     Dates: start: 20100518
  5. COMPAZINE [Concomitant]
     Indication: NAUSEA
     Dates: start: 20100518
  6. EMEND [Concomitant]
     Indication: NAUSEA
     Dosage: 80MG
     Dates: start: 20100608
  7. DECADRON [Concomitant]
     Indication: PREMEDICATION
     Dates: start: 20100608

REACTIONS (2)
  - MUSCULOSKELETAL PAIN [None]
  - PULMONARY EMBOLISM [None]
